FAERS Safety Report 23150723 (Version 3)
Quarter: 2023Q4

REPORT INFORMATION
  Report Type: Spontaneous
  Country: US (occurrence: US)
  Receive Date: 20231106
  Receipt Date: 20231204
  Transmission Date: 20240109
  Serious: Yes (Other)
  Sender: FDA-Public Use
  Company Number: US-PFIZER INC-202300353421

PATIENT
  Age: 83 Year
  Sex: Female
  Weight: 99.79 kg

DRUGS (1)
  1. PAXLOVID [Suspect]
     Active Substance: NIRMATRELVIR\RITONAVIR
     Indication: COVID-19 treatment
     Dosage: TOOK 2 DOSES OF PAXLOVID,1 IN THE EVENING AND 1 IN THE MORNING
     Route: 048
     Dates: start: 20231031, end: 20231104

REACTIONS (3)
  - Haematochezia [Not Recovered/Not Resolved]
  - Diarrhoea [Not Recovered/Not Resolved]
  - Anal haemorrhage [Unknown]

NARRATIVE: CASE EVENT DATE: 20231031
